FAERS Safety Report 10347598 (Version 5)
Quarter: 2014Q4

REPORT INFORMATION
  Report Type: Spontaneous
  Country: US (occurrence: None)
  Receive Date: 20140725
  Receipt Date: 20141021
  Transmission Date: 20150528
  Serious: Yes (Other)
  Sender: FDA-Public Use
  Company Number: UNT-2014-004128

PATIENT
  Age: 46 Year
  Sex: Male
  Weight: 79.4 kg

DRUGS (3)
  1. LETAIRIS [Suspect]
     Active Substance: AMBRISENTAN
     Indication: PRODUCT USED FOR UNKNOWN INDICATION
     Route: 048
     Dates: start: 20140722
  2. ADCIRCA [Suspect]
     Active Substance: TADALAFIL
     Indication: PRODUCT USED FOR UNKNOWN INDICATION
  3. TYVASO [Suspect]
     Active Substance: TREPROSTINIL
     Indication: PULMONARY ARTERIAL HYPERTENSION
     Route: 055
     Dates: start: 20140508

REACTIONS (10)
  - Nausea [None]
  - Tremor [None]
  - Headache [None]
  - Malaise [None]
  - Depression [None]
  - Candida infection [None]
  - Oropharyngeal pain [None]
  - Urticaria [None]
  - Sinusitis [None]
  - Aphonia [None]

NARRATIVE: CASE EVENT DATE: 2014
